FAERS Safety Report 15803811 (Version 1)
Quarter: 2019Q1

REPORT INFORMATION
  Report Type: Spontaneous
  Country: US (occurrence: US)
  Receive Date: 20190109
  Receipt Date: 20190109
  Transmission Date: 20190417
  Serious: Yes (Other)
  Sender: FDA-Public Use
  Company Number: None

PATIENT
  Age: 74 Year
  Sex: Female
  Weight: 69.75 kg

DRUGS (2)
  1. GAMMAPLEX [Suspect]
     Active Substance: HUMAN IMMUNOGLOBULIN G
     Indication: CHRONIC INFLAMMATORY DEMYELINATING POLYRADICULONEUROPATHY
     Dosage: ?          OTHER FREQUENCY:DAILY FOR 5 DAYS;?
     Route: 042
     Dates: start: 20181217, end: 20181228
  2. GAMMAPLEX [Suspect]
     Active Substance: HUMAN IMMUNOGLOBULIN G
     Indication: CHRONIC INFLAMMATORY DEMYELINATING POLYRADICULONEUROPATHY
     Dosage: ?          OTHER FREQUENCY:DAILY FOR 5 DAYS;?
     Route: 042
     Dates: start: 20181217, end: 20181228

REACTIONS (9)
  - Pain of skin [None]
  - Skin exfoliation [None]
  - Feeling hot [None]
  - Pruritus [None]
  - Erythema [None]
  - Lip swelling [None]
  - Peripheral swelling [None]
  - Rash generalised [None]
  - Infusion related reaction [None]

NARRATIVE: CASE EVENT DATE: 20181221
